FAERS Safety Report 5479068-X (Version None)
Quarter: 2007Q4

REPORT INFORMATION
  Report Type: 
  Country: None (occurrence: None)
  Receive Date: 20071006
  Receipt Date: 20070926
  Transmission Date: 20080405
  Serious: Yes (Death)
  Sender: FDA-Public Use
  Company Number: US-PFIZER INC-2007081193

PATIENT
  Sex: Male

DRUGS (1)
  1. LOMOTIL (TABLET) [Suspect]

REACTIONS (1)
  - ELECTROLYTE IMBALANCE [None]
